FAERS Safety Report 25088214 (Version 2)
Quarter: 2025Q3

REPORT INFORMATION
  Report Type: Spontaneous
  Country: EU (occurrence: EU)
  Receive Date: 20250318
  Receipt Date: 20250917
  Transmission Date: 20251021
  Serious: Yes (Hospitalization)
  Sender: MYLAN
  Company Number: EU-MYLANLABS-2025M1022442

PATIENT
  Sex: Female

DRUGS (4)
  1. CLOZARIL [Suspect]
     Active Substance: CLOZAPINE
     Indication: Schizophrenia
     Dates: start: 20180926, end: 20250306
  2. CLOZARIL [Suspect]
     Active Substance: CLOZAPINE
     Route: 048
     Dates: start: 20180926, end: 20250306
  3. CLOZARIL [Suspect]
     Active Substance: CLOZAPINE
     Route: 048
     Dates: start: 20180926, end: 20250306
  4. CLOZARIL [Suspect]
     Active Substance: CLOZAPINE
     Dates: start: 20180926, end: 20250306

REACTIONS (2)
  - Intestinal obstruction [Unknown]
  - Intestinal perforation [Unknown]
